FAERS Safety Report 7088349-8 (Version None)
Quarter: 2010Q4

REPORT INFORMATION
  Report Type: 
  Country: None (occurrence: None)
  Receive Date: 20101108
  Receipt Date: 20101027
  Transmission Date: 20110411
  Serious: Yes (Hospitalization)
  Sender: FDA-Public Use
  Company Number: US-ELI_LILLY_AND_COMPANY-US201010006645

PATIENT
  Age: 83 Year
  Sex: Female

DRUGS (3)
  1. ADCIRCA [Suspect]
     Indication: CHRONIC OBSTRUCTIVE PULMONARY DISEASE
     Dosage: 20 MG, 2/D
  2. WARFARIN [Concomitant]
  3. TRACLEER [Concomitant]

REACTIONS (7)
  - BLOOD GLUCOSE INCREASED [None]
  - CONSTIPATION [None]
  - DYSPNOEA [None]
  - HEART RATE INCREASED [None]
  - HOSPITALISATION [None]
  - OFF LABEL USE [None]
  - SWELLING [None]
